FAERS Safety Report 24592250 (Version 1)
Quarter: 2024Q4

REPORT INFORMATION
  Report Type: Spontaneous
  Country: US (occurrence: US)
  Receive Date: 20241108
  Receipt Date: 20241108
  Transmission Date: 20250115
  Serious: Yes (Other)
  Sender: DR REDDYS
  Company Number: US-DRL-USA-LIT/USA/24/0016488

PATIENT

DRUGS (5)
  1. TACROLIMUS [Suspect]
     Active Substance: TACROLIMUS
     Indication: Prophylaxis against graft versus host disease
     Dosage: TACROLIMUS IS DOSED TO ACHIEVE EARLY TRANSPLANTATION TROUGH CONCENTRATIONS BETWEEN 10 AND 15 NG/ML
  2. MYCOPHENOLATE MOFETIL [Concomitant]
     Active Substance: MYCOPHENOLATE MOFETIL
     Indication: Prophylaxis against graft versus host disease
     Dosage: CAPPED AT 1000 MG, GIVEN 3 TIMES DAILY THROUGH DAY +35
  3. MYCOPHENOLATE MOFETIL [Concomitant]
     Active Substance: MYCOPHENOLATE MOFETIL
     Dosage: MMF 15 MG/KG/DOSE
  4. CYCLOPHOSPHAMIDE [Concomitant]
     Active Substance: CYCLOPHOSPHAMIDE
     Indication: Prophylaxis against graft versus host disease
     Dosage: 50 MG/KG/DOSE, WITH THE DAY +3 DOSE GIVEN BETWEEN 60 AND 72 HOURS FOLLOWING STEM CELL INFUSION
  5. MESNA [Concomitant]
     Active Substance: MESNA
     Indication: Prophylaxis
     Dosage: 50 MG/M2

REACTIONS (1)
  - Drug ineffective for unapproved indication [Unknown]
